FAERS Safety Report 4996618-8 (Version None)
Quarter: 2006Q2

REPORT INFORMATION
  Report Type: 
  Country: None (occurrence: None)
  Receive Date: 20060509
  Receipt Date: 20060427
  Transmission Date: 20061013
  Serious: Yes (Hospitalization)
  Sender: FDA-Public Use
  Company Number: FR-BRISTOL-MYERS SQUIBB COMPANY-13369665

PATIENT
  Age: 31 Year
  Sex: Male

DRUGS (10)
  1. ENDOXAN [Suspect]
     Indication: B-CELL LYMPHOMA
     Route: 042
     Dates: start: 20060209, end: 20060209
  2. ELDISINE [Suspect]
     Indication: B-CELL LYMPHOMA
     Route: 042
     Dates: start: 20060213, end: 20060213
  3. DOXORUBICIN HCL [Suspect]
     Indication: B-CELL LYMPHOMA
     Route: 042
     Dates: start: 20060209, end: 20060209
  4. VALACYCLOVIR HCL [Suspect]
     Indication: INFECTION PROPHYLAXIS
     Route: 048
     Dates: start: 20051222, end: 20060314
  5. MABTHERA [Suspect]
     Indication: B-CELL LYMPHOMA
     Route: 042
     Dates: start: 20060209, end: 20060209
  6. BACTRIM DS [Suspect]
     Indication: INFECTION PROPHYLAXIS
     Route: 048
     Dates: start: 20051222, end: 20060314
  7. PREDNISONE TAB [Concomitant]
  8. NEULASTA [Concomitant]
     Dosage: DAY 3 OF EACH COURSE
  9. METHOTREXATE [Concomitant]
     Route: 037
  10. BLEOMYCIN [Concomitant]

REACTIONS (2)
  - CHOLANGITIS ACUTE [None]
  - HEPATITIS ACUTE [None]
